FAERS Safety Report 10217334 (Version 2)
Quarter: 2014Q2

REPORT INFORMATION
  Report Type: Spontaneous
  Country: US (occurrence: US)
  Receive Date: 20140604
  Receipt Date: 20140627
  Transmission Date: 20141212
  Serious: Yes (Other)
  Sender: FDA-Public Use
  Company Number: US-GE HEALTHCARE MEDICAL DIAGNOSTICS-DATS-PR-1405S-0022

PATIENT
  Age: 68 Year
  Sex: Female

DRUGS (14)
  1. DATSCAN [Suspect]
     Indication: PARKINSON^S DISEASE
     Dosage: DOSE NOT REPORTED
     Route: 042
     Dates: start: 20140515, end: 20140515
  2. DATSCAN [Suspect]
     Indication: DIAGNOSTIC PROCEDURE
  3. CLONIDINE [Concomitant]
     Dosage: DOSE NOT REPORTED
     Route: 065
  4. OMEPRAZOLE [Concomitant]
     Dosage: DOSE NOT REPORTED
     Route: 065
  5. PRAMIPAXOLE [Concomitant]
     Dosage: DOSE NOT REPORTED
     Route: 065
  6. LORATIDINE [Concomitant]
     Dosage: DOSE NOT REPORTED
     Route: 065
  7. LOSARTAN [Concomitant]
     Dosage: DOSE NOT REPORTED
     Route: 065
  8. METPROLOL [Concomitant]
     Dosage: DOSE NOT REPORTED
     Route: 065
  9. LORAZEPAM [Concomitant]
     Dosage: DOSE NOT REPORTED
     Route: 065
  10. CETRIZINE [Concomitant]
     Dosage: DOSE NOT REPORTED
     Route: 065
  11. CARBAMEZAPINE [Concomitant]
     Dosage: DOSE NOT REPORTED
     Route: 065
  12. SENNALAX [Concomitant]
     Dosage: DOSE NOT REPORTED
     Route: 065
  13. LITHIUM CARBONATE [Concomitant]
     Dosage: DOSE NOT REPORTED
     Route: 065
  14. LOVASTATIN [Concomitant]
     Dosage: DOSE NOT REPORTED
     Route: 065

REACTIONS (4)
  - Somnolence [Not Recovered/Not Resolved]
  - Fatigue [Not Recovered/Not Resolved]
  - Drug ineffective [Not Recovered/Not Resolved]
  - Dry mouth [Not Recovered/Not Resolved]
